FAERS Safety Report 4549298-X (Version None)
Quarter: 2005Q1

REPORT INFORMATION
  Report Type: 
  Country: None (occurrence: None)
  Receive Date: 20050106
  Receipt Date: 20041221
  Transmission Date: 20050727
  Serious: Yes (Death, Other)
  Sender: FDA-Public Use
  Company Number: USA041183344

PATIENT
  Sex: Male

DRUGS (2)
  1. ALIMTA [Suspect]
     Dosage: 1290 MG
     Dates: start: 20041025
  2. ZOMETA [Concomitant]

REACTIONS (5)
  - DERMATITIS [None]
  - DRUG TOXICITY [None]
  - MUCOSAL INFLAMMATION [None]
  - NEUTROPENIC SEPSIS [None]
  - RENAL FAILURE [None]
